FAERS Safety Report 6411817-6 (Version None)
Quarter: 2009Q4

REPORT INFORMATION
  Report Type: 
  Country: None (occurrence: None)
  Receive Date: 20091020
  Receipt Date: 20091007
  Transmission Date: 20100525
  Serious: Yes (Hospitalization)
  Sender: FDA-Public Use
  Company Number: 2009AC000161

PATIENT
  Age: 6 Year
  Sex: Female
  Weight: 29.9374 kg

DRUGS (13)
  1. DIGOXIN [Suspect]
     Dosage: 50 MCG;BID;PO
     Route: 048
  2. LABETALOL [Concomitant]
  3. LASIX [Concomitant]
  4. ALDACTONE [Concomitant]
  5. CAPTOPRIL [Concomitant]
  6. CARVEDILOL [Concomitant]
  7. ENALAPRIL [Concomitant]
  8. COLACE [Concomitant]
  9. VICODIN [Concomitant]
  10. FERROUS SULFATE TAB [Concomitant]
  11. AMIODARONE [Concomitant]
  12. MAGNESIUM [Concomitant]
  13. ASPIRIN [Concomitant]

REACTIONS (23)
  - CARDIAC ARREST [None]
  - CARDIOMEGALY [None]
  - CARDIOMYOPATHY [None]
  - CONGESTIVE CARDIOMYOPATHY [None]
  - COUGH [None]
  - CROUP INFECTIOUS [None]
  - DEPRESSED LEVEL OF CONSCIOUSNESS [None]
  - DYSPNOEA [None]
  - FALL [None]
  - FATIGUE [None]
  - HYPOGLYCAEMIA [None]
  - HYPOVENTILATION [None]
  - ILL-DEFINED DISORDER [None]
  - MENTAL STATUS CHANGES [None]
  - MITRAL VALVE INCOMPETENCE [None]
  - MULTIPLE INJURIES [None]
  - MYOCARDIAL INFARCTION [None]
  - PYREXIA [None]
  - SINUS TACHYCARDIA [None]
  - TRICUSPID VALVE INCOMPETENCE [None]
  - VENTRICULAR FIBRILLATION [None]
  - VENTRICULAR TACHYARRHYTHMIA [None]
  - VENTRICULAR TACHYCARDIA [None]
